FAERS Safety Report 8571576-8 (Version None)
Quarter: 2012Q3

REPORT INFORMATION
  Report Type: 
  Country: None (occurrence: None)
  Receive Date: 20120806
  Receipt Date: 20120801
  Transmission Date: 20120928
  Serious: Yes (Hospitalization, Other)
  Sender: FDA-Public Use
  Company Number: PHFR2011GB03472

PATIENT
  Sex: Male
  Weight: 86.3 kg

DRUGS (5)
  1. INTERFERON [Concomitant]
     Indication: HEPATITIS C
     Dosage: UNK
     Route: 030
     Dates: start: 20111101
  2. CLOZARIL [Suspect]
     Indication: SCHIZOPHRENIA
     Dosage: 200 MG, BID
     Route: 048
     Dates: start: 20101104, end: 20120209
  3. INTERFERON [Concomitant]
     Dosage: UNK
     Route: 042
     Dates: start: 20120218, end: 20120221
  4. RIBAVIRIN [Concomitant]
     Dosage: UNK
     Route: 048
     Dates: start: 20111101
  5. RIBAVIRIN [Concomitant]
     Dosage: UNK
     Dates: start: 20120218, end: 20120221

REACTIONS (21)
  - WEIGHT DECREASED [None]
  - RED BLOOD CELL SEDIMENTATION RATE INCREASED [None]
  - MASS [None]
  - GAIT DISTURBANCE [None]
  - PSORIATIC ARTHROPATHY [None]
  - CHEST X-RAY ABNORMAL [None]
  - ARTHRALGIA [None]
  - NEUTROPHIL COUNT DECREASED [None]
  - PYREXIA [None]
  - PLATELET COUNT DECREASED [None]
  - DIFFERENTIAL WHITE BLOOD CELL COUNT ABNORMAL [None]
  - ARTHRITIS [None]
  - HAEMOGLOBIN DECREASED [None]
  - PSORIASIS [None]
  - CHONDROCALCINOSIS PYROPHOSPHATE [None]
  - ANAEMIA OF CHRONIC DISEASE [None]
  - WHITE BLOOD CELL COUNT DECREASED [None]
  - TACHYCARDIA [None]
  - MALAISE [None]
  - NEUTROPENIA [None]
  - HAEMOGLOBIN INCREASED [None]
